FAERS Safety Report 24850797 (Version 1)
Quarter: 2025Q1

REPORT INFORMATION
  Report Type: Spontaneous
  Country: EG (occurrence: EG)
  Receive Date: 20250116
  Receipt Date: 20250116
  Transmission Date: 20250408
  Serious: Yes (Other)
  Sender: SANDOZ
  Company Number: EG-SANDOZ-SDZ2025EG001873

PATIENT
  Sex: Male

DRUGS (1)
  1. CEFTRIAXONE [Suspect]
     Active Substance: CEFTRIAXONE
     Indication: Hypersensitivity
     Route: 030

REACTIONS (8)
  - Cyanosis [Unknown]
  - Dyspnoea [Unknown]
  - Swollen tongue [Unknown]
  - Face oedema [Unknown]
  - Pruritus [Unknown]
  - Rash [Unknown]
  - Anaphylactic shock [Unknown]
  - Product packaging issue [Unknown]
